APPROVED DRUG PRODUCT: STERILE WATER FOR INJECTION
Active Ingredient: STERILE WATER FOR INJECTION
Strength: 100%
Dosage Form/Route: LIQUID;N/A
Application: A212735 | Product #001 | TE Code: AP
Applicant: HIKMA PHARMACEUTICALS INTERNATIONAL LTD
Approved: Jan 31, 2023 | RLD: No | RS: No | Type: RX